FAERS Safety Report 9760379 (Version 4)
Quarter: 2014Q4

REPORT INFORMATION
  Report Type: Spontaneous
  Country: US (occurrence: None)
  Receive Date: 20131212
  Receipt Date: 20141121
  Transmission Date: 20150529
  Serious: Yes (Hospitalization, Other)
  Sender: FDA-Public Use
  Company Number: 2013-US-004069

PATIENT
  Age: 33 Year
  Sex: Female
  Weight: 61.2 kg

DRUGS (21)
  1. PREDNISONE(PREDNISONE) [Concomitant]
  2. ACTOS [Concomitant]
     Active Substance: PIOGLITAZONE HYDROCHLORIDE
  3. FENTANYL CITRATE(FENTANYL CITRATE) [Concomitant]
  4. CYMBALTA(DULOXETINE HYDROCHLORIDE) [Concomitant]
  5. MESTINON(PYRIDOSTIGMINE BROMIDE) [Concomitant]
  6. MORPHINE [Suspect]
     Active Substance: MORPHINE
     Indication: PAIN
     Route: 048
     Dates: start: 201310
  7. NUVIGIL(ARMODAFINIL) [Concomitant]
  8. COLCHICINE(COLCHICINE) [Concomitant]
  9. XYREM [Suspect]
     Active Substance: SODIUM OXYBATE
     Indication: NARCOLEPSY
     Route: 048
     Dates: start: 201207, end: 201310
  10. PROTONIX(PANTOPRAZOLE SODIUM SESQUIHYDRATE) [Concomitant]
  11. DILAUDID [Suspect]
     Active Substance: HYDROMORPHONE HYDROCHLORIDE
     Indication: PAIN
     Dates: start: 201310
  12. CELLCEPT (MYCOPHENOLATE) [Concomitant]
  13. LAMICTAL(LAMOTRIGINE) [Concomitant]
  14. GLYSET(MIGLITOL) [Concomitant]
  15. ARIXTRA(FONDAPARINUX SODIUM) [Concomitant]
  16. LYRICA(PREGABALIN) [Concomitant]
  17. NORETHINDRONE(NORETHISTERONE ACETATE) [Concomitant]
  18. BACLOFEN(BACLOFEN) [Concomitant]
  19. RELPAX(ELETRIPTAN HYDROBROMIDE) [Concomitant]
  20. MYBETRIQ(MIRABEGRON) [Concomitant]
  21. ZYRTEC(CETIRIZINE HYDROCHLORIDE) [Concomitant]

REACTIONS (21)
  - Infection [None]
  - Insomnia [None]
  - Haemorrhage [None]
  - Sinusitis [None]
  - Ureteral stent insertion [None]
  - Somnolence [None]
  - Fatigue [None]
  - Nephrolithiasis [None]
  - Renal stone removal [None]
  - Pulmonary embolism [None]
  - Procedural complication [None]
  - Iatrogenic injury [None]
  - Renal failure [None]
  - Device dislocation [None]
  - Therapy cessation [None]
  - Dyspnoea exertional [None]
  - Ureteric haemorrhage [None]
  - Ureteric perforation [None]
  - Feeling abnormal [None]
  - Pneumothorax [None]
  - Weight decreased [None]

NARRATIVE: CASE EVENT DATE: 2013
